FAERS Safety Report 20663218 (Version 1)
Quarter: 2022Q2

REPORT INFORMATION
  Report Type: Spontaneous
  Country: CH (occurrence: None)
  Receive Date: 20220401
  Receipt Date: 20220401
  Transmission Date: 20220720
  Serious: Yes (Hospitalization)
  Sender: FDA-Public Use
  Company Number: 2022A133380

PATIENT
  Age: 73 Year
  Sex: Male

DRUGS (4)
  1. NEXIUM [Suspect]
     Active Substance: ESOMEPRAZOLE MAGNESIUM
     Indication: Product used for unknown indication
     Dosage: 40 MILLIGRAM, 1/DAY
     Route: 065
     Dates: start: 20211227, end: 20220128
  2. LEVOFLOXACIN [Suspect]
     Active Substance: LEVOFLOXACIN
     Indication: Antibiotic prophylaxis
     Dosage: 500 MILLIGRAM, ONCE500.0MG ONCE/SINGLE ADMINISTRATION
     Route: 042
     Dates: start: 20211226, end: 20211226
  3. FLOXAL [Suspect]
     Active Substance: OFLOXACIN
     Indication: Product used for unknown indication
     Dosage: UNK
     Route: 047
     Dates: start: 20211227, end: 20220110
  4. PREDNISONE [Concomitant]
     Active Substance: PREDNISONE
     Indication: Product used for unknown indication
     Dosage: UNK

REACTIONS (1)
  - Vanishing bile duct syndrome [Not Recovered/Not Resolved]

NARRATIVE: CASE EVENT DATE: 20220203
